FAERS Safety Report 9776212 (Version 2)
Quarter: 2013Q4

REPORT INFORMATION
  Report Type: Report from Study
  Country: JP (occurrence: JP)
  Receive Date: 20131220
  Receipt Date: 20131220
  Transmission Date: 20140711
  Serious: Yes (Hospitalization, Other)
  Sender: FDA-Public Use
  Company Number: JP-TAKEDA-2013TJP002303

PATIENT
  Age: 75 Year
  Sex: Female
  Weight: 58 kg

DRUGS (13)
  1. LANSOPRAZOLE [Suspect]
     Indication: PROPHYLAXIS AGAINST GASTROINTESTINAL ULCER
     Dosage: 15 MG, QD
     Route: 048
     Dates: start: 20110926, end: 20121206
  2. ACTOS [Concomitant]
     Dosage: 15 MG, 1 DAYS
     Route: 048
     Dates: start: 20110926
  3. BAYASPIRIN [Concomitant]
     Indication: THROMBOSIS PROPHYLAXIS
     Dosage: 100 MG, 1 DAYS
     Route: 048
     Dates: start: 20110926
  4. JANUVIA [Concomitant]
     Dosage: 50 MG, 1 DAYS
     Route: 048
     Dates: start: 20110926
  5. GLIMEPIRIDE [Concomitant]
     Dosage: 1 MG, 1 DAYS
     Route: 048
     Dates: start: 20110926, end: 20120902
  6. GLIMEPIRIDE [Concomitant]
     Dosage: 2 MG, 1 DAYS
     Route: 048
     Dates: start: 20120903, end: 20121010
  7. GLIMEPIRIDE [Concomitant]
     Dosage: 3 MG, 1 DAYS
     Route: 048
     Dates: start: 20121011
  8. LIVALO [Concomitant]
     Dosage: 1 MG, 1 DAYS
     Route: 048
     Dates: start: 20110926
  9. NORVASC OD [Concomitant]
     Dosage: 5 MG, 1 DAYS
     Route: 048
     Dates: start: 20110926
  10. ARICEPT D [Concomitant]
     Indication: DEMENTIA ALZHEIMER^S TYPE
     Dosage: 5 MG, 1 DAYS
     Route: 048
     Dates: start: 20110926
  11. OLMETEC [Concomitant]
     Indication: HYPERTENSION
     Dosage: 20 MG, 1 DAYS
     Route: 048
     Dates: start: 20110926, end: 20120606
  12. MAGMITT [Concomitant]
     Indication: CONSTIPATION
     Dosage: 660 MG, 1 DAYS
     Route: 048
     Dates: start: 20110926
  13. MEDET [Concomitant]
     Indication: DIABETES MELLITUS
     Dosage: 500 MG, 1 DAYS
     Route: 048
     Dates: start: 20111021, end: 20120606

REACTIONS (3)
  - Pancreatic carcinoma [Unknown]
  - Diabetes mellitus [Not Recovered/Not Resolved]
  - Hypertension [Recovering/Resolving]
